FAERS Safety Report 6902976-7 (Version None)
Quarter: 2010Q3

REPORT INFORMATION
  Report Type: 
  Country: None (occurrence: None)
  Receive Date: 20100803
  Receipt Date: 20080808
  Transmission Date: 20110219
  Serious: No
  Sender: FDA-Public Use
  Company Number: US-PFIZER INC-2008067370

PATIENT
  Sex: Male
  Weight: 67.7 kg

DRUGS (17)
  1. LYRICA [Suspect]
     Indication: NEURALGIA
     Route: 048
     Dates: start: 20070701
  2. LYRICA [Suspect]
     Indication: DIABETIC NEUROPATHY
  3. TRAMADOL HYDROCHLORIDE [Suspect]
  4. ALLOPURINOL [Concomitant]
  5. AMITRIPTYLINE HYDROCHLORIDE [Concomitant]
  6. COLCHICINE [Concomitant]
  7. DEXTROAMPHETAMINE [Concomitant]
  8. DIGOXIN [Concomitant]
  9. FUROSEMIDE [Concomitant]
  10. GEMFIBROZIL [Concomitant]
  11. LISINOPRIL [Concomitant]
  12. TOPROL-XL [Concomitant]
  13. MIRTAZAPINE [Concomitant]
  14. POTASSIUM CHLORIDE [Concomitant]
  15. SERTRALINE HYDROCHLORIDE [Concomitant]
  16. SPIRONOLACTONE [Concomitant]
  17. WARFARIN SODIUM [Concomitant]

REACTIONS (1)
  - DRUG SCREEN POSITIVE [None]
